FAERS Safety Report 4924771-0 (Version None)
Quarter: 2006Q1

REPORT INFORMATION
  Report Type: 
  Country: None (occurrence: None)
  Receive Date: 20060222
  Receipt Date: 20060215
  Transmission Date: 20060701
  Serious: Yes (Hospitalization)
  Sender: FDA-Public Use
  Company Number: 050154

PATIENT
  Age: 63 Year
  Sex: Male

DRUGS (3)
  1. HALFLYTELY [Suspect]
     Indication: COLONOSCOPY
     Dosage: 16 OZ., 1X, PO
     Route: 048
     Dates: start: 20051204
  2. LISINOPRIL [Concomitant]
  3. LIPITOR [Concomitant]

REACTIONS (5)
  - ANAPHYLACTIC REACTION [None]
  - ANGIONEUROTIC OEDEMA [None]
  - RESPIRATORY ARREST [None]
  - SENSATION OF FOREIGN BODY [None]
  - VOMITING PROJECTILE [None]
